FAERS Safety Report 10811492 (Version 1)
Quarter: 2015Q1

REPORT INFORMATION
  Report Type: Spontaneous
  Country: US (occurrence: None)
  Receive Date: 20150213
  Receipt Date: 20150213
  Transmission Date: 20150721
  Serious: Yes (Other)
  Sender: FDA-Public Use
  Company Number: None

PATIENT
  Age: 50 Year
  Sex: Female
  Weight: 87.09 kg

DRUGS (1)
  1. LOSARTAN POTASSIUM 100 AUROBINDO [Suspect]
     Active Substance: LOSARTAN POTASSIUM
     Dosage: 1 ONCE DAILY TAKEN BY MOUTH
     Route: 048
     Dates: start: 20150130, end: 20150211

REACTIONS (4)
  - Blood pressure decreased [None]
  - Feeling abnormal [None]
  - Product quality issue [None]
  - Product substitution issue [None]

NARRATIVE: CASE EVENT DATE: 20150202
